FAERS Safety Report 13346829 (Version 8)
Quarter: 2018Q2

REPORT INFORMATION
  Report Type: Spontaneous
  Country: US (occurrence: US)
  Receive Date: 20170317
  Receipt Date: 20180424
  Transmission Date: 20180711
  Serious: Yes (Life-Threatening, Hospitalization, Other)
  Sender: FDA-Public Use
  Company Number: US-PFIZER INC-2017108503

PATIENT
  Age: 69 Year
  Sex: Male
  Weight: 97.5 kg

DRUGS (20)
  1. FLUOXETINE [Interacting]
     Active Substance: FLUOXETINE HYDROCHLORIDE
     Indication: SCHIZOPHRENIA
  2. LORAZEPAM. [Concomitant]
     Active Substance: LORAZEPAM
     Indication: SCHIZOPHRENIA
  3. CLOPIDOGREL [Concomitant]
     Active Substance: CLOPIDOGREL BISULFATE
     Indication: ISCHAEMIC CARDIOMYOPATHY
  4. DIGOXIN. [Concomitant]
     Active Substance: DIGOXIN
     Indication: ISCHAEMIC CARDIOMYOPATHY
  5. AMIODARONE HCL [Suspect]
     Active Substance: AMIODARONE HYDROCHLORIDE
     Indication: CORONARY ARTERY DISEASE
     Dosage: UNK
  6. CARVEDILOL. [Concomitant]
     Active Substance: CARVEDILOL
     Indication: CORONARY ARTERY DISEASE
     Dosage: UNK
  7. FLUPHENAZINE [Interacting]
     Active Substance: FLUPHENAZINE
     Indication: BIPOLAR DISORDER
     Dosage: UNK (1 YEAR BEFORE PRESENTATION)
  8. CARVEDILOL. [Concomitant]
     Active Substance: CARVEDILOL
     Indication: ISCHAEMIC CARDIOMYOPATHY
  9. DIGOXIN. [Concomitant]
     Active Substance: DIGOXIN
     Indication: CORONARY ARTERY DISEASE
     Dosage: UNK
  10. POTASSIUM [Concomitant]
     Active Substance: POTASSIUM
     Indication: ISCHAEMIC CARDIOMYOPATHY
  11. DIPHENHYDRAMINE HCL [Suspect]
     Active Substance: DIPHENHYDRAMINE HYDROCHLORIDE
     Indication: INSOMNIA
     Dosage: UNK (UNKNOWN QUANTITY)
     Route: 048
  12. ROPINIROLE. [Suspect]
     Active Substance: ROPINIROLE
     Indication: SCHIZOPHRENIA
  13. CLOPIDOGREL [Concomitant]
     Active Substance: CLOPIDOGREL BISULFATE
     Indication: CORONARY ARTERY DISEASE
     Dosage: UNK
  14. AMIODARONE HCL [Interacting]
     Active Substance: AMIODARONE HYDROCHLORIDE
     Indication: ISCHAEMIC CARDIOMYOPATHY
  15. CIPROFLOXACIN. [Suspect]
     Active Substance: CIPROFLOXACIN
     Indication: URINARY TRACT INFECTION
     Dosage: UNK (7-DAY COURSE, ORDERED APPROXIMATELY 1 MONTH PRIOR)
  16. FLUOXETINE [Interacting]
     Active Substance: FLUOXETINE HYDROCHLORIDE
     Indication: BIPOLAR DISORDER
     Dosage: UNK
  17. FLUPHENAZINE [Interacting]
     Active Substance: FLUPHENAZINE
     Indication: SCHIZOPHRENIA
  18. ROPINIROLE. [Suspect]
     Active Substance: ROPINIROLE
     Indication: BIPOLAR DISORDER
     Dosage: UNK
  19. LORAZEPAM. [Concomitant]
     Active Substance: LORAZEPAM
     Indication: BIPOLAR DISORDER
     Dosage: UNK
     Route: 048
  20. POTASSIUM [Concomitant]
     Active Substance: POTASSIUM
     Indication: CORONARY ARTERY DISEASE
     Dosage: UNK

REACTIONS (3)
  - Torsade de pointes [Recovering/Resolving]
  - Drug interaction [Unknown]
  - Electrocardiogram QT prolonged [Recovering/Resolving]
